FAERS Safety Report 8813294 (Version 1)
Quarter: 2012Q4

REPORT INFORMATION
  Report Type: 
  Country: US (occurrence: US)
  Receive Date: 20120927
  Receipt Date: 20120927
  Transmission Date: 20130627
  Serious: No
  Sender: FDA-Public Use
  Company Number: US-AMGEN-USASP2012051071

PATIENT
  Age: 73 Year
  Sex: Female
  Weight: 59.41 kg

DRUGS (6)
  1. PROLIA [Suspect]
     Indication: OSTEOPOROSIS POSTMENOPAUSAL
     Dosage: 60 mg, q6mo
     Dates: start: 20110621, end: 20111227
  2. SIMVASTATIN [Suspect]
     Indication: DYSLIPIDAEMIA
     Dosage: 20 mg, qd
     Route: 048
     Dates: start: 2003
  3. HYZAAR [Concomitant]
     Indication: HYPERTENSION
     Dosage: UNK UNK, qd
     Route: 048
  4. WARFARIN [Concomitant]
     Dosage: 40 mg, qd
     Route: 048
  5. NU-IRON [Concomitant]
     Dosage: 150 mg, qd
     Route: 048
  6. VITAMIN D2 [Concomitant]
     Indication: OSTEOPENIA
     Dosage: 50000 IU, qd
     Route: 048

REACTIONS (9)
  - Ear pain [Recovered/Resolved]
  - Muscular weakness [Not Recovered/Not Resolved]
  - Pain [Recovering/Resolving]
  - Musculoskeletal pain [Not Recovered/Not Resolved]
  - Myalgia [Recovering/Resolving]
  - Asthenia [Not Recovered/Not Resolved]
  - Malaise [Not Recovered/Not Resolved]
  - Fatigue [Not Recovered/Not Resolved]
  - Pain in extremity [Not Recovered/Not Resolved]
